FAERS Safety Report 10058344 (Version 1)
Quarter: 2014Q2

REPORT INFORMATION
  Report Type: Spontaneous
  Country: US (occurrence: US)
  Receive Date: 20140404
  Receipt Date: 20140404
  Transmission Date: 20141212
  Serious: Yes (Death, Other)
  Sender: FDA-Public Use
  Company Number: US-TEVA-472857USA

PATIENT
  Age: 54 Year
  Sex: Male
  Weight: 55.39 kg

DRUGS (4)
  1. FENTANYL [Suspect]
     Indication: BREAKTHROUGH PAIN
     Dates: start: 201201
  2. GABAPENTIN [Concomitant]
     Indication: CANCER PAIN
     Dosage: QHS
     Route: 048
  3. GABAPENTIN [Concomitant]
     Dosage: 900 MILLIGRAM DAILY;
     Route: 048
  4. DILAUDID [Concomitant]
     Indication: CANCER PAIN
     Dosage: 1-2TABS Q4H PRN MAX OF 8 TABLET A DAY

REACTIONS (5)
  - Neoplasm malignant [Fatal]
  - Cholecystitis [Recovered/Resolved]
  - Polyneuropathy [Recovered/Resolved]
  - Herpes zoster [Recovered/Resolved]
  - Pain [Recovered/Resolved]
